FAERS Safety Report 22069817 (Version 2)
Quarter: 2024Q3

REPORT INFORMATION
  Report Type: Spontaneous
  Country: BR (occurrence: BR)
  Receive Date: 20230307
  Receipt Date: 20240912
  Transmission Date: 20241017
  Serious: No
  Sender: CELLTRION
  Company Number: BR-CELLTRION INC.-2023BR004804

PATIENT

DRUGS (1)
  1. TRUXIMA [Suspect]
     Active Substance: RITUXIMAB-ABBS
     Indication: Systemic lupus erythematosus
     Dosage: UNK
     Route: 042

REACTIONS (1)
  - Off label use [Unknown]
